FAERS Safety Report 10879747 (Version 1)
Quarter: 2015Q1

REPORT INFORMATION
  Report Type: Spontaneous
  Country: US (occurrence: None)
  Receive Date: 20150224
  Receipt Date: 20150224
  Transmission Date: 20150721
  Serious: Yes (Hospitalization)
  Sender: FDA-Public Use
  Company Number: None

PATIENT
  Age: 5 Year
  Sex: Male
  Weight: 14.4 kg

DRUGS (4)
  1. METHOTREXATE [Suspect]
     Active Substance: METHOTREXATE
     Dates: end: 20150203
  2. PREDNISONE. [Suspect]
     Active Substance: PREDNISONE
     Dates: end: 20141205
  3. VINCRISTINE SULFATE. [Suspect]
     Active Substance: VINCRISTINE SULFATE
     Dates: end: 20141201
  4. MERCAPTOPURINE. [Suspect]
     Active Substance: MERCAPTOPURINE
     Dates: end: 20150207

REACTIONS (4)
  - Corona virus infection [None]
  - Sepsis [None]
  - Respiratory distress [None]
  - Pneumonia [None]

NARRATIVE: CASE EVENT DATE: 20150210
